FAERS Safety Report 23144454 (Version 1)
Quarter: 2023Q4

REPORT INFORMATION
  Report Type: Report from Study
  Country: US (occurrence: None)
  Receive Date: 20231103
  Receipt Date: 20231103
  Transmission Date: 20240109
  Serious: Yes (Death, Other)
  Sender: FDA-Public Use
  Company Number: 2023A176854

PATIENT
  Age: 29674 Day
  Sex: Female

DRUGS (19)
  1. LYNPARZA [Suspect]
     Active Substance: OLAPARIB
     Indication: Female reproductive neoplasm
     Route: 048
     Dates: start: 20230715, end: 20230731
  2. SIMVASTATIN [Concomitant]
     Active Substance: SIMVASTATIN
     Indication: Blood cholesterol increased
     Dosage: 40.0MG UNKNOWN
  3. LISINOPRIL [Concomitant]
     Active Substance: LISINOPRIL
     Indication: Blood pressure measurement
     Dosage: 10.0MG UNKNOWN
  4. LEVOTHYROXINE [Concomitant]
     Active Substance: LEVOTHYROXINE
     Indication: Thyroid disorder
     Dosage: 1.0UG UNKNOWN
  5. AMLODIPINE BESYLATE [Concomitant]
     Active Substance: AMLODIPINE BESYLATE
     Indication: Thyroid disorder
     Dosage: 1.0UG UNKNOWN
  6. CRANBERRY [Concomitant]
     Active Substance: CRANBERRY
     Route: 048
  7. LATANOPROST OPHTHALMIC [Concomitant]
     Dosage: 0.005% 0.005% DROPS 1 DROP INTO EACH EYE QPM
     Route: 048
  8. TRAZODONE [Concomitant]
     Active Substance: TRAZODONE HYDROCHLORIDE
     Route: 048
  9. PROBIOTICS NOS [Concomitant]
     Active Substance: PROBIOTICS NOS
     Route: 048
  10. VITAMIN E [Concomitant]
     Active Substance: .ALPHA.-TOCOPHEROL
     Route: 048
  11. SENOKOT [Concomitant]
     Active Substance: SENNOSIDES
     Route: 048
  12. VITAMIN B12 [Concomitant]
     Active Substance: CYANOCOBALAMIN
     Route: 048
  13. VITAMIN D3 [Concomitant]
     Active Substance: CHOLECALCIFEROL
     Route: 048
  14. MAGNESIUM [Concomitant]
     Active Substance: MAGNESIUM
     Route: 048
  15. CALCIUM [Concomitant]
     Active Substance: CALCIUM
     Route: 048
  16. ZINC [Concomitant]
     Active Substance: PYRITHIONE ZINC\ZINC\ZINC CHLORIDE
     Route: 048
  17. OMEGA 3 [Concomitant]
     Active Substance: CAPSAICIN
     Route: 048
  18. RUTIN [Concomitant]
     Active Substance: RUTIN
     Route: 048
  19. VITAMIN C [Concomitant]
     Active Substance: ASCORBIC ACID
     Route: 048

REACTIONS (13)
  - Death [Fatal]
  - Peripheral swelling [Unknown]
  - Myalgia [Unknown]
  - Weight decreased [Unknown]
  - Arthralgia [Unknown]
  - Hypoaesthesia [Unknown]
  - Fatigue [Unknown]
  - Decreased appetite [Unknown]
  - Asthenia [Unknown]
  - Pain [Unknown]
  - Dyspnoea [Unknown]
  - Memory impairment [Unknown]
  - Insomnia [Unknown]

NARRATIVE: CASE EVENT DATE: 20230720
